FAERS Safety Report 15937683 (Version 1)
Quarter: 2019Q1

REPORT INFORMATION
  Report Type: Spontaneous
  Country: US (occurrence: US)
  Receive Date: 20190208
  Receipt Date: 20190208
  Transmission Date: 20190417
  Serious: No
  Sender: FDA-Public Use
  Company Number: US-AEGERION PHARMACEUTICAL, INC-AEGR003659

PATIENT
  Sex: Male
  Weight: 73.7 kg

DRUGS (1)
  1. MYALEPT [Suspect]
     Active Substance: METRELEPTIN
     Indication: LIPODYSTROPHY ACQUIRED
     Dosage: 3 MG (0.6 ML OR 60 UNITS), QD
     Route: 058
     Dates: start: 2014

REACTIONS (1)
  - Skin hyperpigmentation [Unknown]
